FAERS Safety Report 14056974 (Version 1)
Quarter: 2017Q4

REPORT INFORMATION
  Report Type: Spontaneous
  Country: US (occurrence: US)
  Receive Date: 20171006
  Receipt Date: 20171006
  Transmission Date: 20180321
  Serious: No
  Sender: FDA-Public Use
  Company Number: US-PRINSTON PHARMACEUTICAL INC.-2017PRN00328

PATIENT
  Age: 55 Year
  Sex: Female
  Weight: 69.84 kg

DRUGS (2)
  1. VALSARTAN. [Suspect]
     Active Substance: VALSARTAN
     Indication: HYPERTENSION
     Dosage: 80 MG, 1X/DAY
     Route: 048
     Dates: start: 20170619, end: 20170706
  2. VALSARTAN. [Suspect]
     Active Substance: VALSARTAN
     Dosage: 40 MG, 1X/DAY
     Route: 048
     Dates: start: 20170707

REACTIONS (8)
  - Hair texture abnormal [Unknown]
  - Eyelid margin crusting [Recovering/Resolving]
  - Productive cough [Unknown]
  - Heart rate irregular [Recovered/Resolved]
  - Tongue geographic [Recovering/Resolving]
  - Dry eye [Recovering/Resolving]
  - Eye pain [Recovering/Resolving]
  - Dry mouth [Recovering/Resolving]

NARRATIVE: CASE EVENT DATE: 2017
